FAERS Safety Report 13528893 (Version 1)
Quarter: 2017Q2

REPORT INFORMATION
  Report Type: Spontaneous
  Country: None (occurrence: IT)
  Receive Date: 20170509
  Receipt Date: 20170509
  Transmission Date: 20170830
  Serious: Yes (Other)
  Sender: FDA-Public Use
  Company Number: IT-MEDAC PHARMA, INC.-2020489

PATIENT
  Age: 53 Year
  Sex: Female
  Weight: 59 kg

DRUGS (3)
  1. METHOTREXATE (METHOTREXATE SODIUM) [Suspect]
     Active Substance: METHOTREXATE SODIUM
     Indication: SPONDYLITIS
     Route: 058
     Dates: start: 2015, end: 20170413
  2. DIBASE [Concomitant]
     Active Substance: CHOLECALCIFEROL
     Route: 048
  3. SIMPONI [Suspect]
     Active Substance: GOLIMUMAB
     Route: 058
     Dates: start: 2015, end: 20170413

REACTIONS (2)
  - Pruritus [Unknown]
  - Erythrodermic psoriasis [Unknown]

NARRATIVE: CASE EVENT DATE: 20170413
